FAERS Safety Report 5345054-3 (Version None)
Quarter: 2007Q2

REPORT INFORMATION
  Report Type: 
  Country: None (occurrence: None)
  Receive Date: 20070425
  Receipt Date: 20060725
  Transmission Date: 20071010
  Serious: Yes (Other)
  Sender: FDA-Public Use
  Company Number: WAES 0607USA05087

PATIENT
  Age: 5 Year
  Sex: Male

DRUGS (3)
  1. SINGULAIR [Suspect]
     Indication: HYPERSENSITIVITY
     Dosage: 5 MG/DAILY/PO
     Route: 048
     Dates: start: 20060401, end: 20060724
  2. [THERAPY UNSPECIFIED] [Concomitant]
  3. SODIUM FLUORIDE [Concomitant]

REACTIONS (2)
  - CONVULSION [None]
  - PRESCRIBED OVERDOSE [None]
